FAERS Safety Report 4320350-7 (Version None)
Quarter: 2004Q1

REPORT INFORMATION
  Report Type: 
  Country: None (occurrence: None)
  Receive Date: 20040317
  Receipt Date: 20040312
  Transmission Date: 20041129
  Serious: Yes (Hospitalization)
  Sender: FDA-Public Use
  Company Number: 200410264BVD

PATIENT
  Age: 44 Year
  Sex: Female
  Weight: 65 kg

DRUGS (3)
  1. AVELOX [Suspect]
     Indication: BRONCHITIS
     Dosage: 400 MG, QD, ORAL
     Route: 048
     Dates: start: 20040227, end: 20040228
  2. MCP ^RATIOPHARM^ [Concomitant]
  3. ACC 200 [Concomitant]

REACTIONS (6)
  - BLOOD GLUCOSE DECREASED [None]
  - DRUG INTOLERANCE [None]
  - FLUSHING [None]
  - NAUSEA [None]
  - PALPITATIONS [None]
  - RESTLESSNESS [None]
